FAERS Safety Report 5676877-9 (Version None)
Quarter: 2008Q1

REPORT INFORMATION
  Report Type: 
  Country: None (occurrence: None)
  Receive Date: 20080324
  Receipt Date: 20080319
  Transmission Date: 20080703
  Serious: Yes (Hospitalization)
  Sender: FDA-Public Use
  Company Number: US-MERCK-0803USA03317

PATIENT
  Age: 55 Year
  Sex: Male

DRUGS (7)
  1. VYTORIN [Suspect]
     Indication: BLOOD CHOLESTEROL INCREASED
     Route: 048
     Dates: start: 20050901
  2. PRINIVIL [Concomitant]
     Route: 065
  3. HYDRODIURIL [Concomitant]
     Route: 065
  4. SEROTONIN [Concomitant]
     Route: 065
  5. PLAVIX [Concomitant]
     Route: 065
  6. METOPROLOL [Concomitant]
     Route: 065
  7. BUSPIRONE HYDROCHLORIDE [Concomitant]
     Route: 065

REACTIONS (1)
  - MYOCARDIAL INFARCTION [None]
